FAERS Safety Report 11128761 (Version 2)
Quarter: 2015Q2

REPORT INFORMATION
  Report Type: Report from Study
  Country: KR (occurrence: KR)
  Receive Date: 20150521
  Receipt Date: 20150618
  Transmission Date: 20150821
  Serious: Yes (Death, Hospitalization, Other)
  Sender: FDA-Public Use
  Company Number: KR-CELGENE-KOR-2015053552

PATIENT
  Age: 56 Year
  Sex: Female
  Weight: 58.2 kg

DRUGS (4)
  1. REVLIMID [Suspect]
     Active Substance: LENALIDOMIDE
     Indication: PLASMA CELL MYELOMA
     Route: 048
     Dates: start: 20141124
  2. REVLIMID [Suspect]
     Active Substance: LENALIDOMIDE
     Route: 048
     Dates: start: 20150224
  3. REVLIMID [Suspect]
     Active Substance: LENALIDOMIDE
     Dosage: 2 GRAM
     Route: 048
     Dates: start: 20150119
  4. REVLIMID [Suspect]
     Active Substance: LENALIDOMIDE
     Dosage: 20 MILLIGRAM
     Route: 048
     Dates: start: 20150316

REACTIONS (3)
  - Epiglottitis [Not Recovered/Not Resolved]
  - Plasma cell myeloma [Fatal]
  - Squamous cell carcinoma of the tongue [Unknown]

NARRATIVE: CASE EVENT DATE: 20150424
